FAERS Safety Report 16100930 (Version 1)
Quarter: 2019Q1

REPORT INFORMATION
  Report Type: Spontaneous
  Country: US (occurrence: US)
  Receive Date: 20190321
  Receipt Date: 20190321
  Transmission Date: 20190418
  Serious: Yes (Other)
  Sender: FDA-Public Use
  Company Number: US-SA-2019SA074751

PATIENT
  Sex: Male
  Weight: 65 kg

DRUGS (2)
  1. ALPRAZOLAM. [Suspect]
     Active Substance: ALPRAZOLAM
     Indication: ANXIETY
     Dosage: UNK UNK, UNK
  2. AMBIEN [Suspect]
     Active Substance: ZOLPIDEM TARTRATE
     Indication: INSOMNIA
     Dosage: UNK UNK, UNK
     Route: 065

REACTIONS (6)
  - Mental disability [Unknown]
  - Insomnia [Unknown]
  - Palpitations [Unknown]
  - Drug dependence [Unknown]
  - Anxiety [Unknown]
  - Hypertension [Unknown]
